FAERS Safety Report 15958917 (Version 1)
Quarter: 2019Q1

REPORT INFORMATION
  Report Type: Spontaneous
  Country: FR (occurrence: FR)
  Receive Date: 20190214
  Receipt Date: 20190214
  Transmission Date: 20190417
  Serious: Yes (Life-Threatening)
  Sender: FDA-Public Use
  Company Number: FR-BAXTER-2019BAX002708

PATIENT
  Age: 70 Year
  Sex: Male

DRUGS (1)
  1. GLUCOSE 10% BAXTER, SOLUTION POUR PERFUSION [Suspect]
     Active Substance: DEXTROSE
     Indication: FLUID OVERLOAD
     Route: 042
     Dates: start: 20190111, end: 20190113

REACTIONS (4)
  - Coma [Recovering/Resolving]
  - Product prescribing error [Recovering/Resolving]
  - Hyponatraemia [Recovering/Resolving]
  - Product dose omission [Recovering/Resolving]

NARRATIVE: CASE EVENT DATE: 20190114
